FAERS Safety Report 8432638-9 (Version None)
Quarter: 2012Q2

REPORT INFORMATION
  Report Type: 
  Country: None (occurrence: None)
  Receive Date: 20120613
  Receipt Date: 20120530
  Transmission Date: 20120825
  Serious: Yes (Hospitalization)
  Sender: FDA-Public Use
  Company Number: DK-UCBSA-057447

PATIENT
  Age: 64 Year
  Sex: Male
  Weight: 92.7 kg

DRUGS (6)
  1. METHOTREXATE [Concomitant]
     Indication: RHEUMATOID ARTHRITIS
     Dosage: 20 MG QS
     Route: 048
     Dates: start: 20110223
  2. UNIKALK SILVER [Concomitant]
     Indication: PROPHYLAXIS
     Route: 048
     Dates: start: 20080327
  3. CIMZIA [Suspect]
  4. FOLIC ACID [Concomitant]
     Indication: PROPHYLAXIS
     Dosage: 5 MG QS
     Route: 048
     Dates: start: 20080327
  5. ACETAMINOPHEN [Concomitant]
     Indication: RHEUMATOID ARTHRITIS
     Route: 048
     Dates: start: 20050101
  6. PREDNISOLONE [Concomitant]
     Indication: RHEUMATOID ARTHRITIS
     Route: 048
     Dates: start: 20120123

REACTIONS (2)
  - HAEMATURIA [None]
  - BLADDER PAPILLOMA [None]
